FAERS Safety Report 9690309 (Version 1)
Quarter: 2013Q4

REPORT INFORMATION
  Report Type: Spontaneous
  Country: US (occurrence: None)
  Receive Date: 20131114
  Receipt Date: 20131114
  Transmission Date: 20140711
  Serious: No
  Sender: FDA-Public Use
  Company Number: None

PATIENT
  Age: 77 Year
  Sex: Male

DRUGS (1)
  1. KEPPRA (LEVETIRACETAM) [Suspect]
     Indication: CONVULSION PROPHYLAXIS
     Dosage: UNKNOWN/REFER MEDICAL RECORDS
     Route: 048

REACTIONS (1)
  - Decreased interest [None]
